FAERS Safety Report 10778173 (Version 2)
Quarter: 2015Q3

REPORT INFORMATION
  Report Type: Spontaneous
  Country: NL (occurrence: NL)
  Receive Date: 20150209
  Receipt Date: 20150921
  Transmission Date: 20151125
  Serious: Yes (Other)
  Sender: FDA-Public Use
  Company Number: PHHY2015NL012780

PATIENT
  Age: 59 Year
  Sex: Female
  Weight: 52 kg

DRUGS (3)
  1. ALENDRONINEZUUR SANDOZ [Suspect]
     Active Substance: ALENDRONATE SODIUM
     Indication: OSTEOPOROSIS
     Dosage: 70 MG, QW (1 KEER PER WEEK 1 STUK(S))
     Route: 048
     Dates: start: 201306, end: 20150107
  2. CALCIUMCARBONAAT [Concomitant]
     Indication: PRODUCT USED FOR UNKNOWN INDICATION
     Dosage: 2 DF, BID (2 KEER PER DAG 2 STUK(S))
     Route: 048
     Dates: start: 2011
  3. CALCIUMCARBONAAT [Concomitant]
     Dosage: 2 KEER PER DAG 2 STUK(S)
     Route: 048
     Dates: start: 2011

REACTIONS (7)
  - Mood swings [Recovered/Resolved with Sequelae]
  - Fatigue [Recovered/Resolved with Sequelae]
  - Paraesthesia [Not Recovered/Not Resolved]
  - Nausea [Recovered/Resolved]
  - Irritability [Recovered/Resolved with Sequelae]
  - Feeling abnormal [Recovered/Resolved]
  - Depression [Recovered/Resolved with Sequelae]

NARRATIVE: CASE EVENT DATE: 201308
